FAERS Safety Report 24006535 (Version 1)
Quarter: 2024Q2

REPORT INFORMATION
  Report Type: Spontaneous
  Country: US (occurrence: None)
  Receive Date: 20240624
  Receipt Date: 20240624
  Transmission Date: 20240716
  Serious: Yes (Hospitalization)
  Sender: FDA-Public Use
  Company Number: None

PATIENT
  Sex: Female

DRUGS (2)
  1. MYCOPHENOLIC ACID [Suspect]
     Active Substance: MYCOPHENOLIC ACID
     Indication: Renal transplant
     Dosage: 180MG BID PO
     Route: 048
     Dates: start: 202110
  2. TACROLIMUS (ASCEND) [Concomitant]

REACTIONS (2)
  - Pneumonia [None]
  - Kidney infection [None]
